FAERS Safety Report 9408115 (Version 1)
Quarter: 2013Q3

REPORT INFORMATION
  Report Type: Spontaneous
  Country: PT (occurrence: None)
  Receive Date: 20130716
  Receipt Date: 20130716
  Transmission Date: 20140515
  Serious: Yes (Other)
  Sender: FDA-Public Use
  Company Number: 2013S1001409

PATIENT
  Age: 62 Year
  Sex: Male

DRUGS (1)
  1. ALIPZA [Suspect]
     Indication: PRODUCT USED FOR UNKNOWN INDICATION
     Dates: start: 20130520, end: 20130612

REACTIONS (1)
  - Toxic skin eruption [None]
